FAERS Safety Report 18734995 (Version 1)
Quarter: 2021Q1

REPORT INFORMATION
  Report Type: Spontaneous
  Country: FR (occurrence: FR)
  Receive Date: 20210113
  Receipt Date: 20210113
  Transmission Date: 20210419
  Serious: Yes (Other)
  Sender: FDA-Public Use
  Company Number: NVSC2021FR005133

PATIENT
  Age: 96 Year
  Sex: Female

DRUGS (3)
  1. RIFAMPICIN [Suspect]
     Active Substance: RIFAMPIN
     Indication: ARTHRITIS
     Dosage: 1200 MG, QD
     Route: 048
     Dates: start: 20201031, end: 20201118
  2. CUBICIN [Concomitant]
     Active Substance: DAPTOMYCIN
     Indication: PRODUCT USED FOR UNKNOWN INDICATION
     Dosage: UNK
     Route: 042
     Dates: start: 20201028, end: 20201031
  3. ZYVOXID [Suspect]
     Active Substance: LINEZOLID
     Indication: ARTHRITIS
     Dosage: 1200 MG,QD
     Route: 048
     Dates: start: 20201031, end: 20201118

REACTIONS (1)
  - Pancreatitis [Recovering/Resolving]

NARRATIVE: CASE EVENT DATE: 20201116
